FAERS Safety Report 5051795-8 (Version None)
Quarter: 2006Q3

REPORT INFORMATION
  Report Type: 
  Country: None (occurrence: None)
  Receive Date: 20060712
  Receipt Date: 20060712
  Transmission Date: 20061208
  Serious: Yes (Hospitalization)
  Sender: FDA-Public Use
  Company Number: None

PATIENT
  Age: 42 Year
  Sex: Male
  Weight: 89 kg

DRUGS (1)
  1. GENTAMICIN [Suspect]
     Indication: BACTERAEMIA
     Dosage: 2.7G, 90 MG Q8H , INTRAVEN
     Route: 042

REACTIONS (1)
  - BLOOD CREATININE INCREASED [None]
